FAERS Safety Report 14452872 (Version 1)
Quarter: 2018Q1

REPORT INFORMATION
  Report Type: Spontaneous
  Country: GB (occurrence: GB)
  Receive Date: 20180129
  Receipt Date: 20180129
  Transmission Date: 20180509
  Serious: Yes (Other)
  Sender: FDA-Public Use
  Company Number: GB-TEVA-2018-GB-850931

PATIENT
  Age: 53 Year
  Sex: Female
  Weight: 58.89 kg

DRUGS (7)
  1. MARIOSEA XL PROLONGED RELEASE [Suspect]
     Active Substance: TOLTERODINE TARTRATE
     Indication: BLADDER DISORDER
     Route: 048
     Dates: start: 20171205
  2. CRANBERRY. [Concomitant]
     Active Substance: CRANBERRY
  3. ANTIBIOTICS [Concomitant]
     Active Substance: UNSPECIFIED INGREDIENT
  4. VENTOLIN [Concomitant]
     Active Substance: ALBUTEROL SULFATE
     Indication: ASTHMA
  5. BIOTIN [Concomitant]
     Active Substance: BIOTIN
  6. LINSEED OIL [Concomitant]
     Active Substance: LINSEED OIL
  7. ANTIFUNGALS [Concomitant]
     Active Substance: UNSPECIFIED INGREDIENT

REACTIONS (5)
  - Dry eye [Not Recovered/Not Resolved]
  - Headache [Not Recovered/Not Resolved]
  - Diarrhoea [Not Recovered/Not Resolved]
  - Eye pain [Not Recovered/Not Resolved]
  - Dry mouth [Not Recovered/Not Resolved]

NARRATIVE: CASE EVENT DATE: 20171206
